FAERS Safety Report 19112853 (Version 7)
Quarter: 2024Q1

REPORT INFORMATION
  Report Type: Spontaneous
  Country: US (occurrence: US)
  Receive Date: 20210408
  Receipt Date: 20240206
  Transmission Date: 20240410
  Serious: Yes (Hospitalization, Other)
  Sender: FDA-Public Use
  Company Number: US-PFIZER INC-2021366663

PATIENT
  Age: 55 Year
  Sex: Female
  Weight: 68.5 kg

DRUGS (4)
  1. BOSULIF [Suspect]
     Active Substance: BOSUTINIB MONOHYDRATE
     Indication: Chronic myeloid leukaemia
     Dosage: 400 MG, 1X/DAY (TAKE 1 TABLET)
     Route: 048
  2. BOSULIF [Suspect]
     Active Substance: BOSUTINIB MONOHYDRATE
     Dosage: TAKE 2 TABLETS OF 100 MG
     Route: 048
     Dates: end: 20230803
  3. BOSULIF [Suspect]
     Active Substance: BOSUTINIB MONOHYDRATE
     Dosage: TAKE 2 TABLETS OF 100 MG
     Route: 048
  4. ZOFRAN [Concomitant]
     Active Substance: ONDANSETRON HYDROCHLORIDE
     Dosage: UNK

REACTIONS (11)
  - Pneumonia [Unknown]
  - Adhesion [Unknown]
  - Clostridium difficile colitis [Unknown]
  - Scar [Unknown]
  - Weight decreased [Unknown]
  - Abdominal pain [Unknown]
  - Faecal volume increased [Unknown]
  - Panic attack [Recovering/Resolving]
  - Gastritis [Unknown]
  - Gastrointestinal toxicity [Unknown]
  - Nausea [Recovered/Resolved]

NARRATIVE: CASE EVENT DATE: 20210301
